FAERS Safety Report 5891938-7 (Version None)
Quarter: 2008Q3

REPORT INFORMATION
  Report Type: 
  Country: None (occurrence: None)
  Receive Date: 20080922
  Receipt Date: 20080910
  Transmission Date: 20090109
  Serious: Yes (Other)
  Sender: FDA-Public Use
  Company Number: BR-PFIZER INC-2008077049

PATIENT
  Sex: Male
  Weight: 67 kg

DRUGS (5)
  1. CHANTIX [Suspect]
     Indication: SMOKING CESSATION THERAPY
     Route: 048
     Dates: start: 20080905
  2. CRESTOR [Concomitant]
  3. FENOFIBRATE [Concomitant]
  4. BUPROPION HCL [Concomitant]
  5. PROZAC [Concomitant]
     Dates: start: 20080905

REACTIONS (5)
  - DRY MOUTH [None]
  - EXOPHTHALMOS [None]
  - SLEEP DISORDER [None]
  - SOMNOLENCE [None]
  - SPEECH DISORDER [None]
